FAERS Safety Report 5364477-X (Version None)
Quarter: 2007Q2

REPORT INFORMATION
  Report Type: 
  Country: None (occurrence: None)
  Receive Date: 20070611
  Receipt Date: 20061121
  Transmission Date: 20071010
  Serious: Yes (Other)
  Sender: FDA-Public Use
  Company Number: USA-2006-0025792

PATIENT
  Age: 46 Year
  Sex: Male

DRUGS (3)
  1. OXYCONTIN [Suspect]
     Indication: PAIN
     Dosage: 20 MG, Q8H, ORAL
     Route: 048
     Dates: start: 20050101
  2. PROZAC [Concomitant]
  3. PRILOSEC [Concomitant]

REACTIONS (1)
  - INTENTIONAL DRUG MISUSE [None]
